FAERS Safety Report 5169585-4 (Version None)
Quarter: 2006Q4

REPORT INFORMATION
  Report Type: 
  Country: None (occurrence: None)
  Receive Date: 20060918
  Receipt Date: 20051118
  Transmission Date: 20070319
  Serious: Yes (Hospitalization, Other)
  Sender: FDA-Public Use
  Company Number: US-JNJFOC-20051003686

PATIENT
  Age: 56 Year
  Sex: Female
  Weight: 57.1532 kg

DRUGS (6)
  1. TOPAMAX [Suspect]
     Indication: EPILEPSY
     Dosage: 25 MG
     Dates: start: 20051012
  2. KEPPRA [Concomitant]
  3. CARDIZEM [Concomitant]
  4. ESTRATEST [Concomitant]
  5. PEPCID [Concomitant]
  6. VALIUM [Concomitant]

REACTIONS (1)
  - PANCREATITIS [None]
